FAERS Safety Report 25749803 (Version 1)
Quarter: 2025Q3

REPORT INFORMATION
  Report Type: Spontaneous
  Country: EU (occurrence: EU)
  Receive Date: 20250902
  Receipt Date: 20250902
  Transmission Date: 20251021
  Serious: Yes (Death)
  Sender: RANBAXY
  Company Number: EU-SUN PHARMACEUTICAL INDUSTRIES LTD-2025RR-525105

PATIENT
  Age: 71 Year
  Sex: Male

DRUGS (2)
  1. SILDENAFIL [Suspect]
     Active Substance: SILDENAFIL
     Indication: Erectile dysfunction
     Route: 065
  2. ALPROSTADIL [Suspect]
     Active Substance: ALPROSTADIL
     Indication: Erectile dysfunction
     Route: 065

REACTIONS (1)
  - Aortic aneurysm rupture [Fatal]
